FAERS Safety Report 7506150-5 (Version None)
Quarter: 2011Q2

REPORT INFORMATION
  Report Type: 
  Country: None (occurrence: None)
  Receive Date: 20110526
  Receipt Date: 20110520
  Transmission Date: 20111010
  Serious: Yes (Death, Hospitalization, Other)
  Sender: FDA-Public Use
  Company Number: DE-ELI_LILLY_AND_COMPANY-DE201105006241

PATIENT
  Age: 69 Year
  Sex: Male
  Weight: 73 kg

DRUGS (1)
  1. ALIMTA [Suspect]
     Indication: PLEURAL MESOTHELIOMA
     Dosage: 900 MG, UNKNOWN
     Route: 042
     Dates: start: 20110301, end: 20110501

REACTIONS (6)
  - EPIDERMOLYSIS [None]
  - SEPSIS [None]
  - BURNS SECOND DEGREE [None]
  - PANCYTOPENIA [None]
  - MULTI-ORGAN FAILURE [None]
  - MUCOSAL INFLAMMATION [None]
